FAERS Safety Report 22337042 (Version 1)
Quarter: 2023Q2

REPORT INFORMATION
  Report Type: Spontaneous
  Country: US (occurrence: None)
  Receive Date: 20230518
  Receipt Date: 20230518
  Transmission Date: 20230721
  Serious: No
  Sender: FDA-Public Use
  Company Number: US-ROCHE-3310165

PATIENT
  Sex: Female

DRUGS (1)
  1. ACTEMRA [Suspect]
     Active Substance: TOCILIZUMAB
     Indication: Product used for unknown indication
     Route: 058
     Dates: end: 202301

REACTIONS (9)
  - Brain fog [Unknown]
  - Increased appetite [Unknown]
  - Weight increased [Unknown]
  - Fatigue [Unknown]
  - Flatulence [Unknown]
  - Nausea [Unknown]
  - Back pain [Not Recovered/Not Resolved]
  - Discomfort [Unknown]
  - Feeling abnormal [Unknown]
